APPROVED DRUG PRODUCT: FLUOXETINE HYDROCHLORIDE
Active Ingredient: FLUOXETINE HYDROCHLORIDE
Strength: EQ 60MG BASE
Dosage Form/Route: TABLET;ORAL
Application: A212683 | Product #001 | TE Code: AB
Applicant: STRIDES PHARMA GLOBAL PTE LTD
Approved: Sep 13, 2024 | RLD: No | RS: No | Type: RX